FAERS Safety Report 19771101 (Version 7)
Quarter: 2025Q1

REPORT INFORMATION
  Report Type: Report from Study
  Country: US (occurrence: US)
  Receive Date: 20210831
  Receipt Date: 20250213
  Transmission Date: 20250409
  Serious: Yes (Hospitalization, Other)
  Sender: TAKEDA
  Company Number: US-SHIRE-US201924094

PATIENT
  Age: 44 Year
  Sex: Female

DRUGS (5)
  1. HUMAN IMMUNOGLOBULIN G\HYALURONIDASE RECOMBINANT HUMAN [Suspect]
     Active Substance: HUMAN IMMUNOGLOBULIN G\HYALURONIDASE (HUMAN RECOMBINANT)
     Indication: Hereditary angioedema
     Dosage: 30 GRAM, MONTHLY
  2. HUMAN IMMUNOGLOBULIN G\HYALURONIDASE RECOMBINANT HUMAN [Suspect]
     Active Substance: HUMAN IMMUNOGLOBULIN G\HYALURONIDASE (HUMAN RECOMBINANT)
     Indication: Primary immunodeficiency syndrome
     Dosage: 30 GRAM, MONTHLY
  3. HUMAN IMMUNOGLOBULIN G\HYALURONIDASE RECOMBINANT HUMAN [Suspect]
     Active Substance: HUMAN IMMUNOGLOBULIN G\HYALURONIDASE (HUMAN RECOMBINANT)
     Indication: Immunodeficiency common variable
  4. INSULIN NOS [Concomitant]
     Active Substance: INSULIN NOS
     Indication: Product used for unknown indication
  5. SODIUM CHLORIDE [Concomitant]
     Active Substance: SODIUM CHLORIDE
     Indication: Product used for unknown indication

REACTIONS (30)
  - Hidradenitis [Unknown]
  - Cellulitis [Unknown]
  - Diabetes mellitus [Unknown]
  - Nasopharyngitis [Unknown]
  - Sinus headache [Unknown]
  - Fungal infection [Unknown]
  - Sinusitis [Not Recovered/Not Resolved]
  - Fall [Unknown]
  - Blood glucose increased [Unknown]
  - Sleep apnoea syndrome [Unknown]
  - Fibromyalgia [Unknown]
  - Blood test abnormal [Unknown]
  - Pain [Unknown]
  - Epstein-Barr virus infection [Unknown]
  - Mycotic allergy [Unknown]
  - Illness [Unknown]
  - Blister [Unknown]
  - COVID-19 [Unknown]
  - Cognitive disorder [Unknown]
  - Dermatitis contact [Unknown]
  - Insurance issue [Unknown]
  - Allergic sinusitis [Unknown]
  - Inappropriate schedule of product administration [Unknown]
  - Product use issue [Unknown]
  - Asthma [Unknown]
  - Swelling face [Unknown]
  - Pain in extremity [Unknown]
  - Arthralgia [Unknown]
  - Fatigue [Unknown]
  - Myalgia [Unknown]

NARRATIVE: CASE EVENT DATE: 20190722
